FAERS Safety Report 5020160-1 (Version None)
Quarter: 2006Q2

REPORT INFORMATION
  Report Type: 
  Country: None (occurrence: None)
  Receive Date: 20060602
  Receipt Date: 20060512
  Transmission Date: 20061013
  Serious: Yes (Hospitalization, Other)
  Sender: FDA-Public Use
  Company Number: BE200604002912

PATIENT
  Age: 60 Year
  Sex: Female
  Weight: 80 kg

DRUGS (1)
  1. CYMBALTA [Suspect]
     Indication: DEPRESSION
     Dosage: BUCCAL
     Route: 002
     Dates: start: 20060330, end: 20060403

REACTIONS (3)
  - APATHY [None]
  - COMA [None]
  - STATUS EPILEPTICUS [None]
